FAERS Safety Report 10231050 (Version 1)
Quarter: 2014Q2

REPORT INFORMATION
  Report Type: Spontaneous
  Country: ES (occurrence: ES)
  Receive Date: 20140611
  Receipt Date: 20140611
  Transmission Date: 20141212
  Serious: Yes (Hospitalization)
  Sender: FDA-Public Use
  Company Number: ES-BRISTOL-MYERS SQUIBB COMPANY-20878401

PATIENT
  Age: 68 Year
  Sex: Female

DRUGS (1)
  1. SPRYCEL (CML) TABS 50 MG [Suspect]
     Indication: CHRONIC MYELOID LEUKAEMIA
     Route: 048
     Dates: start: 20121203

REACTIONS (2)
  - Pulmonary tuberculosis [Not Recovered/Not Resolved]
  - Disseminated tuberculosis [Not Recovered/Not Resolved]
